FAERS Safety Report 8954538 (Version 2)
Quarter: 2013Q1

REPORT INFORMATION
  Report Type: Spontaneous
  Country: IT (occurrence: IT)
  Receive Date: 20121209
  Receipt Date: 20130111
  Transmission Date: 20140127
  Serious: Yes (Other)
  Sender: FDA-Public Use
  Company Number: IT-MERCK-1212ITA000363

PATIENT
  Age: 33 Year
  Sex: Male

DRUGS (13)
  1. NOXAFIL [Suspect]
     Indication: ANTIFUNGAL PROPHYLAXIS
     Dosage: 600 MG, QD
     Route: 048
     Dates: start: 20120409, end: 20120419
  2. CYTARABINE [Concomitant]
     Indication: ACUTE MYELOID LEUKAEMIA
     Dosage: 3400 MG, UNK
     Route: 042
     Dates: start: 20120406, end: 20120410
  3. AMIKACIN SULFATE [Concomitant]
     Indication: PYREXIA
     Dosage: 1 G, UNK
     Route: 042
     Dates: start: 20120412, end: 20120424
  4. VANCOMYCIN HYDROCHLORIDE [Concomitant]
     Dosage: 1 G, UNK
     Route: 042
     Dates: start: 20120415, end: 20120417
  5. ANTRA (OMEPRAZOLE) [Concomitant]
     Indication: ABDOMINAL PAIN UPPER
     Dosage: 1 DF, UNK
     Route: 042
     Dates: start: 20120413, end: 20120413
  6. RANIDIL [Concomitant]
     Indication: ABDOMINAL PAIN UPPER
     Dosage: 1 DF, UNK
     Route: 042
     Dates: start: 20120414, end: 20120417
  7. PLASIL [Concomitant]
     Indication: VOMITING
     Dosage: 2 DF, UNK
     Route: 048
     Dates: start: 20120414, end: 20120423
  8. MOTILIUM [Concomitant]
     Indication: NAUSEA
     Dosage: 2 DF, UNK
     Route: 048
     Dates: start: 20120410, end: 20120420
  9. MOTILIUM [Concomitant]
     Indication: VOMITING
  10. VISUMETAZONE [Concomitant]
     Indication: PROPHYLAXIS
     Dosage: 3 GTT, UNK
     Route: 031
     Dates: start: 20120406, end: 20120411
  11. DECADRON [Concomitant]
     Dosage: 2 DF, UNK
     Route: 042
     Dates: start: 20120406, end: 20120410
  12. TAVOR (LORAZEPAM) [Concomitant]
     Indication: INSOMNIA
     Dosage: 1 MG, UNK
     Route: 048
     Dates: start: 20120414, end: 20120507
  13. GLAZIDIM [Concomitant]
     Indication: PYREXIA
     Dosage: 6 G, UNK
     Route: 042
     Dates: start: 20120412, end: 20120417

REACTIONS (4)
  - Eye pain [Recovered/Resolved]
  - Conjunctival haemorrhage [Recovered/Resolved]
  - Erythema [Recovered/Resolved]
  - Exophthalmos [Recovered/Resolved]
